FAERS Safety Report 4358634-9 (Version None)
Quarter: 2004Q2

REPORT INFORMATION
  Report Type: 
  Country: None (occurrence: None)
  Receive Date: 20040505
  Receipt Date: 20040419
  Transmission Date: 20050107
  Serious: No
  Sender: FDA-Public Use
  Company Number: 236072

PATIENT
  Age: 52 Year
  Sex: Male
  Weight: 75 kg

DRUGS (6)
  1. NOVOSEVEN(EPTACOG ALFA (ACTIVATED)) POWDER FOR INJECTION, 4.8MG [Suspect]
     Indication: OPERATIVE HAEMORRHAGE
     Dosage: 96 UG/KG, SINGLE,
     Dates: start: 20040304, end: 20040304
  2. UMULINE (INSULIN HUMAN ZINC SUSPENSION) [Concomitant]
  3. NORADRENALINE (NOREPINEPHRINE) [Concomitant]
  4. DOBUTAMINE (DOBUTAMINE) [Concomitant]
  5. MIDAZOLAM HCL [Concomitant]
  6. FENTANYL [Concomitant]

REACTIONS (2)
  - MEDICAL DEVICE COMPLICATION [None]
  - THROMBOSIS [None]
